FAERS Safety Report 10373925 (Version 1)
Quarter: 2014Q1

REPORT INFORMATION
  Report Type: Spontaneous
  Country: US (occurrence: None)
  Receive Date: 20140306
  Receipt Date: 20140306
  Transmission Date: 20141002
  Serious: Yes (Hospitalization)
  Sender: FDA-Public Use
  Company Number: 163-21880-13012230

PATIENT
  Age: 61 Year
  Sex: Male

DRUGS (11)
  1. REVLIMID (LENALIDOMIDE) (CAPSULES) [Suspect]
     Indication: PLASMA CELL MYELOMA
     Dosage: 25 MG, 14 IN 14 D, PO
     Route: 048
     Dates: start: 20121119
  2. ACYCLOVIR (ACICLOVIR) (UNKNOWN) [Concomitant]
  3. AMIODARONE HCL (AMIODARONE HYDROCHLORIDE) (UNKNOWN) [Concomitant]
  4. BAYER ASPIRIN (ACETYLSALICYLIC ACID) (UNKNOWN) [Concomitant]
  5. BENICAR (OLMESARTAN MEDOXOMIL) (UNKNOWN) [Concomitant]
  6. DEXAMETHASONE (DEXAMETHASONE) (UNKNOWN) [Concomitant]
  7. DIAZEPAM (DIAZEPAM) (UNKNOWN) (DIAZEPAM) [Concomitant]
  8. KLOR-CON (POTASSIUM CHLORIDE) (UNKNOWN) [Concomitant]
  9. LASIX (FUROSEMIDE) (UNKNOWN) [Concomitant]
  10. ADVAIR DISKUS (SERETIDE MITE) (UNKNOWN) [Concomitant]
  11. OXYGEN (OXYGEN) (UNKNOWN) [Concomitant]

REACTIONS (3)
  - Infection [None]
  - Dyspnoea [None]
  - Atrial fibrillation [None]
